FAERS Safety Report 5797451-X (Version None)
Quarter: 2008Q2

REPORT INFORMATION
  Report Type: 
  Country: None (occurrence: None)
  Receive Date: 20080630
  Receipt Date: 20080617
  Transmission Date: 20081010
  Serious: Yes (Hospitalization)
  Sender: FDA-Public Use
  Company Number: 20080158

PATIENT
  Sex: Female

DRUGS (2)
  1. ACETYLCYSTEINE [Suspect]
     Indication: MUCOSAL INFLAMMATION
     Dosage: 4 ML (800 MG) VIA NEBULIZER RESPIRATORY
     Route: 055
     Dates: start: 20080604, end: 20080605
  2. DUO NEB, EVERY 6 HOURS RESPIRATORY ALBUTEROL 2.5 MG/IPRATROPIUM 0.5 MG [Concomitant]

REACTIONS (1)
  - HYPOXIA [None]
